FAERS Safety Report 7222229-X (Version None)
Quarter: 2011Q1

REPORT INFORMATION
  Report Type: 
  Country: None (occurrence: None)
  Receive Date: 20110103
  Receipt Date: 20101216
  Transmission Date: 20110831
  Serious: Yes (Other)
  Sender: FDA-Public Use
  Company Number: 1000017915

PATIENT
  Age: 35 Year
  Sex: Female
  Weight: 65 kg

DRUGS (1)
  1. ESCITALOPRAM [Suspect]
     Dosage: (60 MG,ONCE), ORAL
     Route: 048
     Dates: start: 20101216, end: 20101216

REACTIONS (2)
  - DRUG ABUSE [None]
  - INTENTIONAL OVERDOSE [None]
